FAERS Safety Report 5412641-3 (Version None)
Quarter: 2007Q3

REPORT INFORMATION
  Report Type: 
  Country: None (occurrence: None)
  Receive Date: 20070813
  Receipt Date: 20070809
  Transmission Date: 20080115
  Serious: Yes (Death, Other)
  Sender: FDA-Public Use
  Company Number: JP-ASTRAZENECA-2007AP04223

PATIENT
  Age: 26811 Day
  Sex: Male
  Weight: 59 kg

DRUGS (9)
  1. IRESSA [Suspect]
     Indication: LUNG ADENOCARCINOMA
     Route: 048
     Dates: start: 20070625, end: 20070709
  2. SELBEX [Concomitant]
     Route: 048
  3. RABEPRAZOLE SODIUM [Concomitant]
     Route: 048
  4. EXCEGRAN [Concomitant]
     Route: 048
  5. AMOBAN [Concomitant]
     Route: 048
  6. PREDNISOLONE [Concomitant]
     Route: 048
  7. CODEINE PHOSPHATE [Concomitant]
     Route: 048
  8. CARBOPLATIN [Concomitant]
     Dosage: 2 COURSES
     Dates: start: 20070502, end: 20070606
  9. TAXOL [Concomitant]
     Dosage: 2 COURSES
     Dates: start: 20070502, end: 20070606

REACTIONS (2)
  - HEPATIC FUNCTION ABNORMAL [None]
  - INTERSTITIAL LUNG DISEASE [None]
